FAERS Safety Report 5342790-X (Version None)
Quarter: 2007Q2

REPORT INFORMATION
  Report Type: 
  Country: None (occurrence: None)
  Receive Date: 20070601
  Receipt Date: 20070522
  Transmission Date: 20071010
  Serious: Yes (Other)
  Sender: FDA-Public Use
  Company Number: US-PFIZER INC-2007042171

PATIENT
  Sex: Female
  Weight: 45.454 kg

DRUGS (4)
  1. CHANTIX [Suspect]
     Indication: SMOKING CESSATION THERAPY
     Dosage: FREQ:DAILY
     Dates: start: 20070413, end: 20070519
  2. FLUOXETINE [Concomitant]
     Indication: DEPRESSION
  3. VYTORIN [Concomitant]
     Indication: BLOOD CHOLESTEROL
  4. ALL OTHER THERAPEUTIC PRODUCTS [Concomitant]

REACTIONS (8)
  - CRYING [None]
  - DEPRESSION [None]
  - IMPAIRED WORK ABILITY [None]
  - MALAISE [None]
  - MENTAL STATUS CHANGES [None]
  - MOOD ALTERED [None]
  - RESTLESSNESS [None]
  - TREMOR [None]
